FAERS Safety Report 4793542-0 (Version None)
Quarter: 2005Q4

REPORT INFORMATION
  Report Type: 
  Country: None (occurrence: None)
  Receive Date: 20051011
  Receipt Date: 20050928
  Transmission Date: 20060501
  Serious: Yes (Hospitalization)
  Sender: FDA-Public Use
  Company Number: FR-BRISTOL-MYERS SQUIBB COMPANY-13127436

PATIENT
  Age: 43 Year
  Sex: Male
  Weight: 61 kg

DRUGS (7)
  1. ABILIFY [Suspect]
     Indication: PSYCHOTIC DISORDER
     Route: 048
     Dates: start: 20050801
  2. TERCIAN [Concomitant]
     Indication: PSYCHOTIC DISORDER
     Dates: start: 20050601
  3. DEPAKENE [Concomitant]
     Dates: start: 20020101
  4. LYSANXIA [Concomitant]
     Indication: ANXIETY
     Dates: start: 20020101
  5. IMOVANE [Concomitant]
     Indication: INSOMNIA
     Dates: start: 20020101
  6. THERALENE [Concomitant]
     Indication: INSOMNIA
     Dates: start: 20030601
  7. ATARAX [Concomitant]
     Indication: ANXIETY
     Dates: start: 20050301

REACTIONS (1)
  - SUBILEUS [None]
